FAERS Safety Report 7462196-7 (Version None)
Quarter: 2011Q2

REPORT INFORMATION
  Report Type: 
  Country: None (occurrence: None)
  Receive Date: 20110506
  Receipt Date: 20110104
  Transmission Date: 20111010
  Serious: No
  Sender: FDA-Public Use
  Company Number: US-BAYER-2011-002223

PATIENT
  Sex: Female

DRUGS (1)
  1. YASMIN [Suspect]

REACTIONS (4)
  - STRESS [None]
  - MENSTRUATION DELAYED [None]
  - METRORRHAGIA [None]
  - CONFUSIONAL STATE [None]
